FAERS Safety Report 7336292-9 (Version None)
Quarter: 2011Q1

REPORT INFORMATION
  Report Type: 
  Country: None (occurrence: None)
  Receive Date: 20110307
  Receipt Date: 20110301
  Transmission Date: 20110831
  Serious: Yes (Other)
  Sender: FDA-Public Use
  Company Number: US-PFIZER INC-2011012366

PATIENT
  Sex: Female

DRUGS (1)
  1. EFFEXOR XR [Suspect]
     Indication: DEPRESSION
     Dosage: 112.5 MG, 1X/DAY
     Route: 048

REACTIONS (2)
  - DEPRESSION [None]
  - GLYCOGEN STORAGE DISEASE TYPE II [None]
